FAERS Safety Report 6219484-1 (Version None)
Quarter: 2009Q2

REPORT INFORMATION
  Report Type: 
  Country: None (occurrence: None)
  Receive Date: 20090609
  Receipt Date: 20090605
  Transmission Date: 20091009
  Serious: Yes (Life-Threatening, Hospitalization)
  Sender: FDA-Public Use
  Company Number: PHEH2009US05035

PATIENT
  Age: 84 Year
  Sex: Female

DRUGS (1)
  1. RECLAST [Suspect]
     Indication: OSTEOPOROSIS
     Dosage: 5 MG, ONCE/SINGLE
     Dates: start: 20090120, end: 20090120

REACTIONS (6)
  - BLOOD CREATININE INCREASED [None]
  - BRADYCARDIA [None]
  - FATIGUE [None]
  - HYPERCALCAEMIA [None]
  - HYPERTENSION [None]
  - RENAL FAILURE ACUTE [None]
